FAERS Safety Report 12748734 (Version 1)
Quarter: 2016Q3

REPORT INFORMATION
  Report Type: Spontaneous
  Country: FR (occurrence: FR)
  Receive Date: 20160915
  Receipt Date: 20160915
  Transmission Date: 20161109
  Serious: Yes (Hospitalization)
  Sender: FDA-Public Use
  Company Number: FR-ASTRAZENECA-2016SE96481

PATIENT
  Age: 62 Year
  Sex: Male

DRUGS (2)
  1. MOPRAL [Suspect]
     Active Substance: OMEPRAZOLE SODIUM
     Indication: HELICOBACTER INFECTION
     Route: 048
     Dates: start: 20160712
  2. PYLERA [Suspect]
     Active Substance: BISMUTH SUBCITRATE POTASSIUM\METRONIDAZOLE\TETRACYCLINE HYDROCHLORIDE
     Indication: HELICOBACTER INFECTION
     Dosage: 140MG/125MG/125MG
     Route: 048
     Dates: start: 20160712, end: 20160721

REACTIONS (8)
  - Erythema [Recovered/Resolved]
  - Thrombocytopenia [Unknown]
  - Photosensitivity reaction [Unknown]
  - Hepatomegaly [Unknown]
  - Transaminases increased [Recovered/Resolved]
  - Toxic skin eruption [Unknown]
  - Enanthema [Recovered/Resolved]
  - Lymphadenopathy [Unknown]

NARRATIVE: CASE EVENT DATE: 20160718
